FAERS Safety Report 23920189 (Version 1)
Quarter: 2024Q2

REPORT INFORMATION
  Report Type: Spontaneous
  Country: CN (occurrence: None)
  Receive Date: 20240530
  Receipt Date: 20240530
  Transmission Date: 20240716
  Serious: Yes (Other)
  Sender: FDA-Public Use
  Company Number: 2024A122470

PATIENT
  Age: 3151 Week
  Sex: Male
  Weight: 105 kg

DRUGS (1)
  1. TICAGRELOR [Suspect]
     Active Substance: TICAGRELOR
     Indication: Coronary artery disease
     Route: 048
     Dates: start: 20240520, end: 20240522

REACTIONS (1)
  - Breath holding [Recovered/Resolved]

NARRATIVE: CASE EVENT DATE: 20240522
